FAERS Safety Report 24841762 (Version 1)
Quarter: 2025Q1

REPORT INFORMATION
  Report Type: Spontaneous
  Country: ID (occurrence: ID)
  Receive Date: 20250114
  Receipt Date: 20250114
  Transmission Date: 20250409
  Serious: Yes (Other)
  Sender: ELI LILLY AND COMPANY
  Company Number: ID-MLMSERVICE-20241226-PI325059-00165-2

PATIENT
  Age: 45 Year
  Sex: Male

DRUGS (6)
  1. GEMCITABINE HYDROCHLORIDE [Suspect]
     Active Substance: GEMCITABINE HYDROCHLORIDE
     Indication: Gallbladder adenocarcinoma
     Route: 065
  2. GEMCITABINE HYDROCHLORIDE [Suspect]
     Active Substance: GEMCITABINE HYDROCHLORIDE
     Indication: Metastases to liver
  3. CAPECITABINE [Concomitant]
     Active Substance: CAPECITABINE
     Indication: Gallbladder adenocarcinoma
     Dosage: 6 CYCLES EVERY 28 DAYS (WITH DIVIDED DOSES EVERY 14 DAYS), 1000 MG CAPECITABINE BID FOR 7 DAYS
     Route: 065
  4. CAPECITABINE [Concomitant]
     Active Substance: CAPECITABINE
     Indication: Metastases to liver
  5. AMLODIPINE [Concomitant]
     Active Substance: AMLODIPINE BESYLATE
     Indication: Hypertension
     Route: 065
  6. ATORVASTATIN [Concomitant]
     Active Substance: ATORVASTATIN
     Indication: Hypertension
     Dosage: EVERY NIGHT
     Route: 065

REACTIONS (1)
  - Deep vein thrombosis [Recovering/Resolving]
